FAERS Safety Report 6869443-0 (Version None)
Quarter: 2010Q3

REPORT INFORMATION
  Report Type: 
  Country: None (occurrence: None)
  Receive Date: 20100722
  Receipt Date: 20100722
  Transmission Date: 20110219
  Serious: Yes (Hospitalization)
  Sender: FDA-Public Use
  Company Number: None

PATIENT
  Sex: Male
  Weight: 90.7194 kg

DRUGS (8)
  1. IXABEPILONE [Suspect]
     Indication: OESOPHAGEAL CANCER METASTATIC
     Dosage: 42 MG; DAY 1,8 AND 15 OF EACH CYCLE
     Dates: start: 20100616
  2. SUNITINIB MALATE [Suspect]
     Dosage: 37.5 MG; EVERY DAY STARTING ON CYCLE 1 DAY 8
     Dates: start: 20100623
  3. VIT C [Concomitant]
  4. MV [Concomitant]
  5. FISH OIL [Concomitant]
  6. MOTRIN [Concomitant]
  7. COMPAZINE [Concomitant]
  8. ZOFRAN [Concomitant]

REACTIONS (2)
  - COUGH [None]
  - PYREXIA [None]
